FAERS Safety Report 9612822 (Version 1)
Quarter: 2013Q4

REPORT INFORMATION
  Report Type: Spontaneous
  Country: US (occurrence: US)
  Receive Date: 20131010
  Receipt Date: 20131010
  Transmission Date: 20140711
  Serious: No
  Sender: FDA-Public Use
  Company Number: US-BAXTER-2013BAX016638

PATIENT
  Age: 36 Year
  Sex: Male

DRUGS (2)
  1. DIANEAL LOW CALCIUM [Suspect]
     Indication: PERITONEAL DIALYSIS
     Route: 033
     Dates: start: 2012
  2. DIANEAL LOW CALCIUM [Suspect]
     Route: 033
     Dates: start: 2012

REACTIONS (4)
  - Fluid overload [Recovered/Resolved]
  - Oedema [Recovered/Resolved]
  - Overweight [Recovered/Resolved]
  - Fluid retention [Recovered/Resolved]
